FAERS Safety Report 18045604 (Version 1)
Quarter: 2020Q3

REPORT INFORMATION
  Report Type: Spontaneous
  Country: FR (occurrence: FR)
  Receive Date: 20200720
  Receipt Date: 20200720
  Transmission Date: 20201103
  Serious: Yes (Hospitalization)
  Sender: FDA-Public Use
  Company Number: FR-MYLANLABS-2020M1064220

PATIENT
  Age: 66 Year
  Sex: Male

DRUGS (5)
  1. TACROLIMUS MONOHYDRATE [Suspect]
     Active Substance: TACROLIMUS
     Indication: IMMUNOSUPPRESSION
     Dosage: UNK
     Route: 042
     Dates: start: 20160130
  2. TOBRAMYCIN. [Suspect]
     Active Substance: TOBRAMYCIN
     Indication: PSEUDOMONAS INFECTION
     Dosage: UNK, (450MG EN BOLUS IV LE 08/02/2016 PUIS DOSES INTERMITTENTES DE 300MG JUSQU^AU 24/02/2016)
     Route: 042
     Dates: start: 20160208, end: 20160224
  3. CELLCEPT [Suspect]
     Active Substance: MYCOPHENOLATE MOFETIL\MYCOPHENOLATE MOFETIL HYDROCHLORIDE
     Indication: IMMUNOSUPPRESSION
     Dosage: 2000 MILLIGRAM, QD
     Route: 042
     Dates: start: 20160130, end: 20160407
  4. ACICLOVIR [Suspect]
     Active Substance: ACYCLOVIR
     Indication: HERPES VIRUS INFECTION
     Dosage: UNK
     Route: 042
     Dates: start: 20160217, end: 20160228
  5. COLISTINE /00013203/ [Suspect]
     Active Substance: COLISTIN SULFATE
     Indication: PSEUDOMONAS INFECTION
     Dosage: UNK
     Route: 042
     Dates: start: 20160212, end: 20160229

REACTIONS (1)
  - Acute kidney injury [Recovered/Resolved]

NARRATIVE: CASE EVENT DATE: 20160226
